FAERS Safety Report 9642040 (Version 1)
Quarter: 2013Q4

REPORT INFORMATION
  Report Type: Spontaneous
  Country: GB (occurrence: GB)
  Receive Date: 20131023
  Receipt Date: 20131023
  Transmission Date: 20140711
  Serious: No
  Sender: FDA-Public Use
  Company Number: GB-UCBSA-100508

PATIENT
  Age: 76 Year
  Sex: Male

DRUGS (1)
  1. KEPPRA [Suspect]
     Indication: EPILEPSY
     Dates: start: 201305

REACTIONS (4)
  - Anaemia [Unknown]
  - Leukopenia [Unknown]
  - Full blood count abnormal [Unknown]
  - Blood sodium decreased [Unknown]
